FAERS Safety Report 25005521 (Version 3)
Quarter: 2025Q1

REPORT INFORMATION
  Report Type: Spontaneous
  Country: IT (occurrence: IT)
  Receive Date: 20250224
  Receipt Date: 20250304
  Transmission Date: 20250408
  Serious: No
  Sender: BAUSCH AND LOMB
  Company Number: IT-DR. FALK PHARMA GMBH-BU-048-25

PATIENT
  Age: 5 Year
  Sex: Male

DRUGS (2)
  1. BUDESONIDE [Suspect]
     Active Substance: BUDESONIDE
     Indication: Protein-losing gastroenteropathy
     Route: 065
  2. ALBUMIN HUMAN [Concomitant]
     Active Substance: ALBUMIN HUMAN
     Indication: Protein-losing gastroenteropathy
     Dosage: UNK, BIMONTHLY
     Route: 051

REACTIONS (8)
  - Epiphyses delayed fusion [Unknown]
  - Cortisol decreased [Unknown]
  - Blood corticotrophin decreased [Unknown]
  - Insulin-like growth factor increased [Unknown]
  - Short stature [Unknown]
  - Cushingoid [Unknown]
  - Product use in unapproved indication [Recovered/Resolved]
  - Product use issue [Recovered/Resolved]
